FAERS Safety Report 8936732 (Version 1)
Quarter: 2012Q4

REPORT INFORMATION
  Report Type: 
  Country: US (occurrence: US)
  Receive Date: 20121130
  Receipt Date: 20121130
  Transmission Date: 20130627
  Serious: Yes (Hospitalization)
  Sender: FDA-Public Use
  Company Number: US-ROCHE-1158705

PATIENT
  Age: 48 Year
  Sex: Female
  Weight: 83.99 kg

DRUGS (8)
  1. ACTEMRA [Suspect]
     Indication: RHEUMATOID ARTHRITIS
     Route: 042
     Dates: start: 20120910
  2. ACTEMRA [Suspect]
     Route: 042
     Dates: start: 20121016
  3. NUCYNTA [Concomitant]
     Route: 048
  4. LYRICA [Concomitant]
     Route: 048
  5. DEXILANT [Concomitant]
     Dosage: every morning
     Route: 048
  6. BYSTOLIC [Concomitant]
     Dosage: every afternoon
     Route: 048
  7. VIIBRYD [Concomitant]
     Indication: ANXIETY
  8. FLEXAL [Concomitant]
     Dosage: as needed, drug: flexaril
     Route: 065

REACTIONS (4)
  - Intervertebral disc operation [Unknown]
  - Spinal fusion surgery [Unknown]
  - Musculoskeletal discomfort [Not Recovered/Not Resolved]
  - Musculoskeletal discomfort [Not Recovered/Not Resolved]
